FAERS Safety Report 21674592 (Version 5)
Quarter: 2023Q2

REPORT INFORMATION
  Report Type: Spontaneous
  Country: IN (occurrence: IN)
  Receive Date: 20221202
  Receipt Date: 20230502
  Transmission Date: 20230721
  Serious: Yes (Death, Other)
  Sender: FDA-Public Use
  Company Number: IN-PFIZER INC-PV202200115101

PATIENT
  Age: 53 Year
  Sex: Female

DRUGS (3)
  1. PALBOCICLIB [Suspect]
     Active Substance: PALBOCICLIB
     Indication: Breast cancer
     Dosage: 125 MG, 1X/DAY
     Dates: start: 202209
  2. PALBOCICLIB [Suspect]
     Active Substance: PALBOCICLIB
     Dosage: 125 MG, 1X/DAY
     Dates: start: 20221128
  3. PALBOCICLIB [Suspect]
     Active Substance: PALBOCICLIB
     Dosage: UNK
     Route: 048
     Dates: end: 20230329

REACTIONS (10)
  - Death [Fatal]
  - Oesophageal obstruction [Unknown]
  - Neck mass [Unknown]
  - Feeding disorder [Unknown]
  - Vomiting [Unknown]
  - Neoplasm progression [Unknown]
  - Liver disorder [Unknown]
  - Lung disorder [Unknown]
  - Bone disorder [Unknown]
  - Mouth ulceration [Unknown]

NARRATIVE: CASE EVENT DATE: 20230329
